FAERS Safety Report 9816868 (Version 1)
Quarter: 2014Q1

REPORT INFORMATION
  Report Type: Spontaneous
  Country: US (occurrence: US)
  Receive Date: 20140114
  Receipt Date: 20140114
  Transmission Date: 20141002
  Serious: No
  Sender: FDA-Public Use
  Company Number: US-ENDO PHARMACEUTICALS INC.-PERC20130092

PATIENT
  Sex: 0
  Weight: 91.71 kg

DRUGS (10)
  1. PERCOCET [Suspect]
     Indication: NEURALGIA
     Dosage: UNKNOWN
     Route: 048
     Dates: start: 2010
  2. PERCOCET [Suspect]
     Indication: MULTIPLE SCLEROSIS
  3. DARVOCET [Suspect]
     Indication: NEURALGIA
     Dosage: UNKNOWN
     Route: 048
     Dates: start: 2010
  4. DARVOCET [Suspect]
     Indication: MULTIPLE SCLEROSIS
  5. OXYCONTIN [Concomitant]
     Indication: NEURALGIA
     Dosage: UNKNOWN
     Route: 048
     Dates: start: 2010
  6. OXYCONTIN [Concomitant]
     Indication: MULTIPLE SCLEROSIS
  7. LYRICA [Concomitant]
     Indication: NEURALGIA
     Route: 048
  8. LYRICA [Concomitant]
     Indication: MULTIPLE SCLEROSIS
  9. BACLOFEN [Concomitant]
     Indication: PRODUCT USED FOR UNKNOWN INDICATION
     Dosage: 40 CC/ML
     Route: 058
  10. ZOFRAN [Concomitant]
     Indication: PRODUCT USED FOR UNKNOWN INDICATION
     Dosage: UNKNOWN
     Route: 065

REACTIONS (1)
  - Drug ineffective [Unknown]
